FAERS Safety Report 15668533 (Version 1)
Quarter: 2018Q4

REPORT INFORMATION
  Report Type: Spontaneous
  Country: US (occurrence: US)
  Receive Date: 20181129
  Receipt Date: 20181129
  Transmission Date: 20190205
  Serious: Yes (Other)
  Sender: FDA-Public Use
  Company Number: US-BIOGEN-2018BI00665568

PATIENT
  Sex: Female

DRUGS (1)
  1. TECFIDERA [Suspect]
     Active Substance: DIMETHYL FUMARATE
     Indication: MULTIPLE SCLEROSIS
     Route: 065

REACTIONS (9)
  - Multiple sclerosis relapse [Unknown]
  - Nervousness [Unknown]
  - Hemianaesthesia [Unknown]
  - Type 2 diabetes mellitus [Unknown]
  - Swelling [Unknown]
  - Anxiety [Unknown]
  - Drug ineffective [Unknown]
  - Parkinson^s disease [Unknown]
  - Hot flush [Unknown]
